FAERS Safety Report 13753380 (Version 1)
Quarter: 2017Q3

REPORT INFORMATION
  Report Type: Spontaneous
  Country: US (occurrence: US)
  Receive Date: 20170713
  Receipt Date: 20170713
  Transmission Date: 20171127
  Serious: Yes (Other)
  Sender: FDA-Public Use
  Company Number: US-PFIZER INC-2017300003

PATIENT
  Age: 78 Year
  Sex: Female

DRUGS (2)
  1. SULFASALAZINE. [Suspect]
     Active Substance: SULFASALAZINE
     Dosage: UNK
  2. METHOTREXATE SODIUM. [Suspect]
     Active Substance: METHOTREXATE SODIUM
     Dosage: UNK

REACTIONS (7)
  - Hepatic cirrhosis [Unknown]
  - Loss of personal independence in daily activities [Unknown]
  - Staphylococcal infection [Unknown]
  - Swelling [Unknown]
  - Rheumatoid arthritis [Unknown]
  - Peripheral swelling [Unknown]
  - Fluid retention [Unknown]

NARRATIVE: CASE EVENT DATE: 2017
